FAERS Safety Report 8050880-6 (Version None)
Quarter: 2012Q1

REPORT INFORMATION
  Report Type: 
  Country: None (occurrence: None)
  Receive Date: 20120117
  Receipt Date: 20120109
  Transmission Date: 20120608
  Serious: Yes (Hospitalization, Other)
  Sender: FDA-Public Use
  Company Number: PHEH2012US000868

PATIENT
  Sex: Male

DRUGS (8)
  1. SIMVASTATIN [Concomitant]
     Indication: BLOOD CHOLESTEROL
  2. LISINOPRIL [Concomitant]
  3. ASPIRIN [Concomitant]
     Dosage: 81 MG, UNK
  4. EXELON [Suspect]
     Dosage: 4.6 MG, UNK
     Route: 062
  5. FOLIC ACID [Concomitant]
  6. EXELON [Suspect]
     Dosage: 9.5 MG, (1X DAY)
     Route: 062
  7. COUMADIN [Concomitant]
     Dosage: 3 MG, QOD
  8. COUMADIN [Concomitant]
     Dosage: 4 MG, QOD

REACTIONS (7)
  - NAUSEA [None]
  - ASTHENIA [None]
  - FALL [None]
  - DYSSTASIA [None]
  - GAIT DISTURBANCE [None]
  - VOMITING [None]
  - CHOLELITHIASIS [None]
